FAERS Safety Report 7191833-X (Version None)
Quarter: 2010Q4

REPORT INFORMATION
  Report Type: 
  Country: None (occurrence: None)
  Receive Date: 20101223
  Receipt Date: 20101210
  Transmission Date: 20110411
  Serious: Yes (Hospitalization, Other)
  Sender: FDA-Public Use
  Company Number: PHHY2010US75170

PATIENT
  Sex: Female

DRUGS (5)
  1. TASIGNA [Suspect]
     Indication: CHRONIC MYELOID LEUKAEMIA
     Dosage: 200 MG, 2 CAPS EVERY AM AND 1 CAP EVERY PM
     Route: 048
     Dates: start: 20081205
  2. SINGULAIR [Concomitant]
  3. ADVAIR [Concomitant]
  4. ALBUTEROL [Concomitant]
  5. ATENOLOL [Concomitant]

REACTIONS (17)
  - ABDOMINAL PAIN LOWER [None]
  - ATRIAL FIBRILLATION [None]
  - BLOOD MAGNESIUM DECREASED [None]
  - CALCINOSIS [None]
  - DYSURIA [None]
  - EPISTAXIS [None]
  - FAECALOMA [None]
  - HYPERHIDROSIS [None]
  - HYPOCALCAEMIA [None]
  - ISCHAEMIC STROKE [None]
  - NEUROPATHY PERIPHERAL [None]
  - PARAESTHESIA [None]
  - PARAESTHESIA ORAL [None]
  - TRANSIENT ISCHAEMIC ATTACK [None]
  - URINARY TRACT INFECTION [None]
  - URINE OUTPUT DECREASED [None]
  - WHEEZING [None]
